FAERS Safety Report 20641522 (Version 2)
Quarter: 2022Q3

REPORT INFORMATION
  Report Type: Report from Study
  Country: MX (occurrence: MX)
  Receive Date: 20220328
  Receipt Date: 20220920
  Transmission Date: 20221027
  Serious: Yes (Hospitalization)
  Sender: FDA-Public Use
  Company Number: MX-VIIV HEALTHCARE LIMITED-MX2022AMR049393

PATIENT

DRUGS (8)
  1. MARAVIROC [Suspect]
     Active Substance: MARAVIROC
     Indication: COVID-19 pneumonia
     Dosage: 300 MG, BID (19 TABLETS ADMINISTERED)
     Route: 048
     Dates: start: 20220115, end: 20220124
  2. FAVIPIRAVIR [Suspect]
     Active Substance: FAVIPIRAVIR
     Indication: COVID-19 pneumonia
     Dosage: 600 MG, BID
     Route: 048
     Dates: start: 20220115, end: 20220120
  3. NPH INSULIN [Concomitant]
     Active Substance: INSULIN BEEF
     Indication: Type 2 diabetes mellitus
     Dosage: 21 IU, QD
     Dates: start: 20220114, end: 20220117
  4. DEXAMETHASONE [Concomitant]
     Active Substance: DEXAMETHASONE
     Indication: Product used for unknown indication
     Dosage: UNK
     Dates: start: 20220114, end: 20220117
  5. ENOXAPARIN [Concomitant]
     Active Substance: ENOXAPARIN
     Indication: Prophylaxis
     Dosage: 60 MG, QD
     Route: 058
     Dates: start: 20220114
  6. ACETAMINOPHEN [Concomitant]
     Active Substance: ACETAMINOPHEN
     Indication: Pyrexia
     Dosage: 1 G, TID
     Route: 042
     Dates: start: 20220114
  7. METHYLPREDNISOLONE [Concomitant]
     Active Substance: METHYLPREDNISOLONE
     Indication: COVID-19 prophylaxis
     Dosage: 6 MG, BID
     Route: 042
     Dates: start: 20220115
  8. LOSARTAN [Concomitant]
     Active Substance: LOSARTAN
     Indication: Hypertension
     Dosage: 50 MG, QD
     Route: 048
     Dates: start: 20220117

REACTIONS (1)
  - Bradycardia [Recovered/Resolved]

NARRATIVE: CASE EVENT DATE: 20220120
